FAERS Safety Report 25814724 (Version 4)
Quarter: 2025Q4

REPORT INFORMATION
  Report Type: Spontaneous
  Country: JP (occurrence: JP)
  Receive Date: 20250917
  Receipt Date: 20251224
  Transmission Date: 20260118
  Serious: Yes (Hospitalization, Other)
  Sender: ALEXION PHARMACEUTICALS
  Company Number: JP-ASTRAZENECA-202509JPN012095JP

PATIENT
  Age: 76 Year
  Sex: Male
  Weight: 53.9 kg

DRUGS (11)
  1. IMFINZI [Suspect]
     Active Substance: DURVALUMAB
     Indication: Bile duct cancer
     Dosage: 1500 MILLIGRAM
     Route: 065
  2. PANCRELIPASE [Concomitant]
     Active Substance: PANCRELIPASE
     Dosage: 150 MILLIGRAM, TID (6 TABLETS)
     Route: 065
  3. URSODIOL [Concomitant]
     Active Substance: URSODIOL
     Dosage: 50 MILLIGRAM, TID (3 TABLETS)
     Route: 065
  4. Leucon [Concomitant]
     Dosage: 10 MILLIGRAM, TID (3 TABLETS)
     Route: 065
  5. FAMOTIDINE [Concomitant]
     Active Substance: FAMOTIDINE
     Dosage: 10 MILLIGRAM, BID (2 TABLETS)
     Route: 061
  6. MAGNESIUM OXIDE [Concomitant]
     Active Substance: MAGNESIUM OXIDE
     Dosage: 330 MILLIGRAM, TID (6 TABLETS)
     Route: 065
  7. SENNOSIDES [Concomitant]
     Active Substance: SENNOSIDES
     Dosage: UNK, QD (2 TABLETS)
     Route: 065
  8. FENOFIBRATE [Concomitant]
     Active Substance: FENOFIBRATE
     Dosage: 80 MILLIGRAM, QD (1 TABLET)
     Route: 061
  9. ICOSAPENT ETHYL [Concomitant]
     Active Substance: ICOSAPENT ETHYL
     Dosage: UNK, BID (2 PACKETS)
  10. TAMSULOSIN [Concomitant]
     Active Substance: TAMSULOSIN
     Dosage: 0.2 MILLIGRAM, QD (1 TABLET)
     Route: 065
  11. MIRABEGRON [Concomitant]
     Active Substance: MIRABEGRON
     Dosage: 25 MILLIGRAM, QD (1 TABLET)
     Route: 061

REACTIONS (4)
  - Immune-mediated enterocolitis [Recovering/Resolving]
  - Immune-mediated adrenal insufficiency [Not Recovered/Not Resolved]
  - Malignant neoplasm progression [Unknown]
  - Hypopituitarism [Not Recovered/Not Resolved]

NARRATIVE: CASE EVENT DATE: 20250804
